FAERS Safety Report 8785726 (Version 4)
Quarter: 2013Q3

REPORT INFORMATION
  Report Type: Spontaneous
  Country: US (occurrence: US)
  Receive Date: 20120914
  Receipt Date: 20130921
  Transmission Date: 20140515
  Serious: Yes (Hospitalization, Disabling, Other)
  Sender: FDA-Public Use
  Company Number: US-009507513-1112USA00803

PATIENT
  Sex: Male

DRUGS (8)
  1. FOSAMAX [Suspect]
     Indication: OSTEOPOROSIS
     Dosage: 70 MG, QW
     Route: 048
     Dates: start: 200405
  2. ALENDRONATE SODIUM [Suspect]
     Indication: OSTEOPOROSIS
     Dosage: 70 MG, QW
     Route: 048
     Dates: start: 200803
  3. ALENDRONATE SODIUM [Suspect]
     Dosage: UNK
  4. VITAMIN D (UNSPECIFIED) [Concomitant]
     Dosage: 2000 MG, QD
     Dates: start: 200301
  5. CALCIUM (UNSPECIFIED) [Concomitant]
     Dosage: 4000 MG, QD
     Dates: start: 200301
  6. PREVACID [Concomitant]
     Indication: GASTROOESOPHAGEAL REFLUX DISEASE
     Dosage: 30 MG, QD
     Dates: start: 1995
  7. CORTICOSTEROIDS (UNSPECIFIED) [Concomitant]
     Dosage: UNK
     Dates: start: 1970, end: 200907
  8. DAPSONE [Concomitant]
     Indication: SKIN ULCER
     Dosage: UNK

REACTIONS (56)
  - Femoral neck fracture [Unknown]
  - Open reduction of fracture [Unknown]
  - Hip arthroplasty [Unknown]
  - Bone debridement [Unknown]
  - Colostomy [Unknown]
  - Ileostomy [Unknown]
  - Fracture nonunion [Unknown]
  - Medical device implantation [Unknown]
  - Osteotomy [Unknown]
  - Device failure [Unknown]
  - Femur fracture [Unknown]
  - Medical device removal [Unknown]
  - Device failure [Unknown]
  - Medical device removal [Unknown]
  - Open reduction of fracture [Unknown]
  - Femur fracture [Unknown]
  - Wound infection [Unknown]
  - Wound infection staphylococcal [Unknown]
  - Hip arthroplasty [Unknown]
  - Essential hypertension [Unknown]
  - Haemoglobin decreased [Unknown]
  - Vitamin D deficiency [Unknown]
  - Haemorrhagic anaemia [Unknown]
  - Bacterial infection [Unknown]
  - Impaired healing [Unknown]
  - Depression [Unknown]
  - Sleep apnoea syndrome [Unknown]
  - Pancreatic duct dilatation [Unknown]
  - Anastomotic ulcer [Unknown]
  - Urethral stenosis [Unknown]
  - Intestinal ulcer [Unknown]
  - Vitamin D deficiency [Unknown]
  - Periprosthetic osteolysis [Unknown]
  - Debridement [Unknown]
  - Drug delivery device implantation [Unknown]
  - Aspiration joint [Unknown]
  - Medical device removal [Unknown]
  - Medical device removal [Unknown]
  - Medical device removal [Unknown]
  - Small intestinal obstruction [Unknown]
  - Crohn^s disease [Unknown]
  - Appendicectomy [Unknown]
  - Cholesteatoma [Unknown]
  - Fall [Unknown]
  - Sleep disorder [Unknown]
  - Alcoholism [Unknown]
  - Pain [Not Recovered/Not Resolved]
  - Gastrointestinal stoma complication [Unknown]
  - Unevaluable event [Unknown]
  - Alcoholic liver disease [Unknown]
  - Oesophageal stenosis [Unknown]
  - Musculoskeletal pain [Unknown]
  - Arthralgia [Unknown]
  - Abdominal pain [Unknown]
  - Diarrhoea [Unknown]
  - Constipation [Unknown]
